FAERS Safety Report 7504118-6 (Version None)
Quarter: 2011Q2

REPORT INFORMATION
  Report Type: 
  Country: None (occurrence: None)
  Receive Date: 20110525
  Receipt Date: 20090810
  Transmission Date: 20111010
  Serious: Yes (Other)
  Sender: FDA-Public Use
  Company Number: KR-TEVA-205509ISR

PATIENT
  Age: 5 Year
  Sex: Female

DRUGS (2)
  1. VINCRISTINE [Suspect]
  2. METHOTREXATE [Suspect]
     Route: 037

REACTIONS (1)
  - POSTERIOR REVERSIBLE ENCEPHALOPATHY SYNDROME [None]
